FAERS Safety Report 20685964 (Version 1)
Quarter: 2022Q2

REPORT INFORMATION
  Report Type: Spontaneous
  Country: DE (occurrence: DE)
  Receive Date: 20220407
  Receipt Date: 20220407
  Transmission Date: 20220721
  Serious: No
  Sender: FDA-Public Use
  Company Number: DE-JAZZ-2021-DE-019185

PATIENT
  Sex: Female

DRUGS (1)
  1. SUNOSI [Suspect]
     Active Substance: SOLRIAMFETOL
     Indication: Narcolepsy
     Dosage: 75 MILLIGRAM, QD
     Route: 048

REACTIONS (1)
  - Therapeutic response shortened [Not Recovered/Not Resolved]
